FAERS Safety Report 4958661-4 (Version None)
Quarter: 2006Q1

REPORT INFORMATION
  Report Type: 
  Country: None (occurrence: None)
  Receive Date: 20060330
  Receipt Date: 20060323
  Transmission Date: 20060701
  Serious: Yes (Death)
  Sender: FDA-Public Use
  Company Number: US-MERCK-0603USA04073

PATIENT
  Age: 74 Year
  Sex: Female
  Weight: 91 kg

DRUGS (2)
  1. VIOXX [Suspect]
     Indication: BACK PAIN
     Route: 048
     Dates: start: 19990818, end: 20031123
  2. MORPHINE [Concomitant]
     Route: 041

REACTIONS (11)
  - ABDOMINAL PAIN [None]
  - ANAEMIA [None]
  - ARTERIOSCLEROSIS [None]
  - BLOOD CHOLESTEROL INCREASED [None]
  - CHEST PAIN [None]
  - HYPERTENSION [None]
  - HYPOTHYROIDISM [None]
  - NEUROPATHY PERIPHERAL [None]
  - RADICULOPATHY [None]
  - SPINAL COLUMN STENOSIS [None]
  - VOMITING [None]
